FAERS Safety Report 16786353 (Version 1)
Quarter: 2019Q3

REPORT INFORMATION
  Report Type: Report from Study
  Country: IT (occurrence: IT)
  Receive Date: 20190909
  Receipt Date: 20190909
  Transmission Date: 20191005
  Serious: Yes (Other)
  Sender: FDA-Public Use
  Company Number: PHHO2019IT008751

PATIENT
  Age: 74 Year
  Weight: 97 kg

DRUGS (9)
  1. GASTROLOC [Concomitant]
     Indication: PROPHYLAXIS
     Route: 065
     Dates: start: 20190320
  2. TRIATEC [Concomitant]
     Indication: HYPERTENSION
     Route: 065
     Dates: start: 20000101
  3. SIMVASTATINE [Concomitant]
     Active Substance: SIMVASTATIN
     Indication: DYSLIPIDAEMIA
     Route: 065
     Dates: start: 20000101
  4. ACZ885 [Suspect]
     Active Substance: CANAKINUMAB
     Indication: NON-SMALL CELL LUNG CANCER
     Dosage: CODE NOT BROKEN
     Route: 058
     Dates: start: 20190605, end: 20190807
  5. CORDARONE [Concomitant]
     Active Substance: AMIODARONE HYDROCHLORIDE
     Indication: ATRIAL FIBRILLATION
     Route: 065
     Dates: start: 20100101
  6. TAPAZOLE [Concomitant]
     Active Substance: METHIMAZOLE
     Indication: HYPERTHYROIDISM
     Route: 065
     Dates: start: 20190807
  7. ZENADINE [Concomitant]
     Indication: HYPERTENSION
     Route: 065
     Dates: start: 20000101
  8. DELTACORTENE [Concomitant]
     Active Substance: PREDNISONE
     Indication: HYPERTHYROIDISM
     Route: 065
     Dates: start: 20190807
  9. TRIATEC HCT [Concomitant]
     Active Substance: HYDROCHLOROTHIAZIDE\RAMIPRIL
     Indication: HYPERTENSION
     Route: 065
     Dates: start: 20000101

REACTIONS (1)
  - Pneumonitis [Not Recovered/Not Resolved]

NARRATIVE: CASE EVENT DATE: 20190828
